FAERS Safety Report 16881186 (Version 2)
Quarter: 2021Q1

REPORT INFORMATION
  Report Type: Report from Study
  Country: US (occurrence: US)
  Receive Date: 20191003
  Receipt Date: 20210111
  Transmission Date: 20210419
  Serious: Yes (Death, Hospitalization, Other)
  Sender: FDA-Public Use
  Company Number: US-ASTELLAS-2019US039107

PATIENT
  Sex: Female

DRUGS (1)
  1. ASP2215 [Suspect]
     Active Substance: GILTERITINIB
     Indication: ACUTE MYELOID LEUKAEMIA
     Route: 048
     Dates: start: 20190909

REACTIONS (6)
  - Death [Fatal]
  - Limb discomfort [Unknown]
  - Fatigue [Unknown]
  - Hypophagia [Unknown]
  - Malaise [Unknown]
  - Pain [Unknown]
